APPROVED DRUG PRODUCT: REGITINE
Active Ingredient: PHENTOLAMINE MESYLATE
Strength: 5MG/VIAL **Federal Register determination that product was not discontinued or withdrawn for safety or effectiveness reasons**
Dosage Form/Route: INJECTABLE;INJECTION
Application: N008278 | Product #003
Applicant: NOVARTIS PHARMACEUTICALS CORP
Approved: Approved Prior to Jan 1, 1982 | RLD: Yes | RS: No | Type: DISCN